FAERS Safety Report 5613877-9 (Version None)
Quarter: 2008Q1

REPORT INFORMATION
  Report Type: 
  Country: None (occurrence: None)
  Receive Date: 20080205
  Receipt Date: 20080123
  Transmission Date: 20080703
  Serious: Yes (Hospitalization)
  Sender: FDA-Public Use
  Company Number: US-ELI_LILLY_AND_COMPANY-US200801004873

PATIENT
  Sex: Female

DRUGS (5)
  1. CYMBALTA [Suspect]
     Indication: DEPRESSION
     Dosage: 60 MG, DAILY (1/D)
     Dates: start: 20070101
  2. CYMBALTA [Suspect]
     Dosage: 30 MG, DAILY (1/D)
  3. CYMBALTA [Suspect]
     Dosage: 30 MG, QOD
  4. METOPROLOL TARTRATE [Concomitant]
     Indication: MITRAL VALVE PROLAPSE
  5. XANAX [Concomitant]
     Dosage: UNK, AS NEEDED

REACTIONS (4)
  - BREAST CANCER [None]
  - DIZZINESS [None]
  - NAUSEA [None]
  - TREMOR [None]
